FAERS Safety Report 25301090 (Version 1)
Quarter: 2025Q2

REPORT INFORMATION
  Report Type: Spontaneous
  Country: US (occurrence: US)
  Receive Date: 20250512
  Receipt Date: 20250512
  Transmission Date: 20250717
  Serious: No
  Sender: UCB
  Company Number: US-UCBSA-2024059019

PATIENT
  Sex: Female
  Weight: 85.578 kg

DRUGS (2)
  1. CIMZIA [Suspect]
     Active Substance: CERTOLIZUMAB PEGOL
     Indication: Psoriatic arthropathy
     Dosage: 200 MILLIGRAM, EV 2 WEEKS(QOW)
     Route: 058
     Dates: start: 20240907
  2. CYLTEZO [ADALIMUMAB] [Concomitant]
     Indication: Product used for unknown indication

REACTIONS (4)
  - Balance disorder [Unknown]
  - Musculoskeletal stiffness [Unknown]
  - Inflammation [Recovered/Resolved]
  - Eye inflammation [Not Recovered/Not Resolved]

NARRATIVE: CASE EVENT DATE: 20240101
